FAERS Safety Report 12332572 (Version 1)
Quarter: 2016Q2

REPORT INFORMATION
  Report Type: Spontaneous
  Country: US (occurrence: US)
  Receive Date: 20160504
  Receipt Date: 20160504
  Transmission Date: 20160815
  Serious: No
  Sender: FDA-Public Use
  Company Number: US-ROCHE-1642609

PATIENT
  Sex: Female
  Weight: 51.76 kg

DRUGS (1)
  1. ESBRIET [Suspect]
     Active Substance: PIRFENIDONE
     Indication: PULMONARY ARTERIAL HYPERTENSION
     Dosage: WITH FOOD
     Route: 048
     Dates: start: 20150605

REACTIONS (1)
  - Eczema [Not Recovered/Not Resolved]
